FAERS Safety Report 17057948 (Version 1)
Quarter: 2019Q4

REPORT INFORMATION
  Report Type: Spontaneous
  Country: CA (occurrence: CA)
  Receive Date: 20191121
  Receipt Date: 20191121
  Transmission Date: 20200122
  Serious: Yes (Other)
  Sender: FDA-Public Use
  Company Number: CA-PFIZER INC-2019498392

PATIENT
  Age: 66 Year
  Sex: Female
  Weight: 70 kg

DRUGS (5)
  1. SENOKOT [Concomitant]
     Active Substance: SENNOSIDES
     Dosage: UNK
  2. TOLTERODINE [Concomitant]
     Active Substance: TOLTERODINE
     Dosage: UNK
  3. PACLITAXEL. [Suspect]
     Active Substance: PACLITAXEL
     Indication: PERITONEAL CARCINOMA METASTATIC
     Dosage: 300 MG, UNK
     Route: 042
  4. OXYCODONE AND ACETAMINOPHEN [Concomitant]
     Active Substance: ACETAMINOPHEN\OXYCODONE HYDROCHLORIDE
     Dosage: UNK
  5. VITAMIN D [Concomitant]
     Active Substance: VITAMIN D NOS
     Dosage: UNK

REACTIONS (6)
  - Hypertension [Recovered/Resolved]
  - Product use in unapproved indication [Unknown]
  - Back pain [Recovered/Resolved]
  - Cough [Recovered/Resolved]
  - Off label use [Unknown]
  - Erythema [Recovered/Resolved]
